FAERS Safety Report 7233110-4 (Version None)
Quarter: 2011Q1

REPORT INFORMATION
  Report Type: 
  Country: None (occurrence: None)
  Receive Date: 20110119
  Receipt Date: 20110111
  Transmission Date: 20110831
  Serious: Yes (Life-Threatening)
  Sender: FDA-Public Use
  Company Number: GB-SANOFI-AVENTIS-200820058GDDC

PATIENT
  Age: 61 Year
  Sex: Female

DRUGS (6)
  1. DOCETAXEL [Suspect]
     Route: 042
     Dates: end: 20061101
  2. CYCLOPHOSPHAMIDE [Suspect]
     Dosage: DOSE AS USED: UNK
     Route: 042
     Dates: start: 20060601, end: 20060901
  3. NEULASTA [Suspect]
     Dosage: DOSE AS USED: UNK
     Route: 042
  4. LETROZOLE [Suspect]
  5. EPIRUBICIN [Suspect]
     Indication: BREAST CANCER
     Route: 042
     Dates: start: 20060601, end: 20060901
  6. FLUOROURACIL [Suspect]
     Dosage: DOSE AS USED: UNK
     Route: 042

REACTIONS (1)
  - PROGRESSIVE MULTIFOCAL LEUKOENCEPHALOPATHY [None]
